FAERS Safety Report 19377746 (Version 1)
Quarter: 2021Q2

REPORT INFORMATION
  Report Type: Spontaneous
  Country: NL (occurrence: NL)
  Receive Date: 20210605
  Receipt Date: 20210605
  Transmission Date: 20210717
  Serious: Yes (Hospitalization, Other)
  Sender: FDA-Public Use
  Company Number: NL-ACCORD-227440

PATIENT
  Age: 55 Year
  Sex: Female

DRUGS (8)
  1. PARACETAMOL [Concomitant]
     Active Substance: ACETAMINOPHEN
     Dates: start: 2000
  2. FLUTICASONE FUROATE [Concomitant]
     Active Substance: FLUTICASONE FUROATE
     Dates: start: 20160101
  3. COLECALCIFEROL [Concomitant]
     Active Substance: CHOLECALCIFEROL
     Dates: start: 20210101
  4. CISPLATIN. [Suspect]
     Active Substance: CISPLATIN
     Indication: CHOLANGIOCARCINOMA
     Dosage: 55 MILLIGRAM, DAYS 1 AND 8 OF EVERY 3?WEEK CYCLE FOR UP TO 8 CYCLES
     Route: 042
     Dates: start: 20210420
  5. VACCINIUM MACROCARPON [Concomitant]
     Active Substance: CRANBERRY
     Dates: start: 20200401
  6. NAPROXEN. [Concomitant]
     Active Substance: NAPROXEN
     Dates: start: 2001
  7. DOMPERIDONE [Concomitant]
     Active Substance: DOMPERIDONE
     Dates: start: 20210301
  8. GEMCITABINE/GEMCITABINE HYDROCHLORIDE [Suspect]
     Active Substance: GEMCITABINE\GEMCITABINE HYDROCHLORIDE
     Indication: CHOLANGIOCARCINOMA
     Dosage: 2200 MILLIGRAM, DAYS 1 AND 8 OF EVERY 3?WEEK CYCLE FOR UP TO 8 CYCLES
     Route: 042
     Dates: start: 20210420

REACTIONS (2)
  - Off label use [Unknown]
  - Embolism [Not Recovered/Not Resolved]

NARRATIVE: CASE EVENT DATE: 20210512
